FAERS Safety Report 25105166 (Version 1)
Quarter: 2025Q1

REPORT INFORMATION
  Report Type: Spontaneous
  Country: EU (occurrence: EU)
  Receive Date: 20250321
  Receipt Date: 20250321
  Transmission Date: 20250409
  Serious: Yes (Hospitalization)
  Sender: ETHYPHARM
  Company Number: None

PATIENT

DRUGS (6)
  1. HEROIN [Suspect]
     Active Substance: DIAMORPHINE
     Dates: start: 20230418, end: 20230418
  2. HEROIN [Suspect]
     Active Substance: DIAMORPHINE
  3. BUPRENORPHINE HYDROCHLORIDE [Suspect]
     Active Substance: BUPRENORPHINE HYDROCHLORIDE
  4. COCAINE [Suspect]
     Active Substance: COCAINE
     Route: 055
  5. CANNABIS SATIVA SUBSP. INDICA TOP [Suspect]
     Active Substance: CANNABIS SATIVA SUBSP. INDICA TOP
  6. BENZODIAZEPINE [Suspect]
     Active Substance: BENZODIAZEPINE

REACTIONS (4)
  - Drug abuse [Not Recovered/Not Resolved]
  - Toxicity to various agents [Recovered/Resolved]
  - Generalised tonic-clonic seizure [Recovered/Resolved]
  - Coma [Recovered/Resolved]

NARRATIVE: CASE EVENT DATE: 20230418
